FAERS Safety Report 9876213 (Version 2)
Quarter: 2014Q1

REPORT INFORMATION
  Report Type: Other
  Country: US (occurrence: US)
  Receive Date: 20140206
  Receipt Date: 20140206
  Transmission Date: 20141002
  Serious: No
  Sender: FDA-Public Use
  Company Number: US-ACORDA-ACO_36131_2013

PATIENT
  Sex: Female

DRUGS (2)
  1. AMPYRA [Suspect]
     Indication: GAIT DISTURBANCE
     Dosage: 10 MG, BID
  2. AVONEX [Interacting]
     Indication: MULTIPLE SCLEROSIS
     Dosage: 30 ?G, WEEKLY
     Route: 065

REACTIONS (4)
  - Energy increased [Recovered/Resolved]
  - Drug interaction [Recovered/Resolved]
  - Insomnia [Recovered/Resolved]
  - Balance disorder [Recovered/Resolved]
